FAERS Safety Report 15997882 (Version 5)
Quarter: 2019Q3

REPORT INFORMATION
  Report Type: Report from Study
  Country: US (occurrence: US)
  Receive Date: 20190222
  Receipt Date: 20190723
  Transmission Date: 20191004
  Serious: Yes (Hospitalization)
  Sender: FDA-Public Use
  Company Number: US-ACTELION-A-NJ2018-183188

PATIENT
  Age: 60 Year
  Sex: Female
  Weight: 101.59 kg

DRUGS (7)
  1. WARFARIN [Concomitant]
     Active Substance: WARFARIN
  2. TADALAFIL. [Concomitant]
     Active Substance: TADALAFIL
  3. VELETRI [Suspect]
     Active Substance: EPOPROSTENOL
     Dosage: 13 NG/KG, PER MIN
     Route: 042
  4. VELETRI [Suspect]
     Active Substance: EPOPROSTENOL
     Dosage: 23 NG/KG, PER MIN
     Route: 042
  5. VELETRI [Suspect]
     Active Substance: EPOPROSTENOL
     Dosage: 17 NG
     Route: 042
  6. REMODULIN [Concomitant]
     Active Substance: TREPROSTINIL
  7. VELETRI [Suspect]
     Active Substance: EPOPROSTENOL
     Indication: PULMONARY ARTERIAL HYPERTENSION
     Dosage: 6 NG/KG, PER MIN
     Route: 042

REACTIONS (9)
  - Fatigue [Unknown]
  - Unevaluable event [Unknown]
  - Therapy change [Unknown]
  - Blood magnesium decreased [Unknown]
  - Dyspnoea [Unknown]
  - Dyspnoea exertional [Unknown]
  - Blood calcium decreased [Unknown]
  - Diarrhoea [Unknown]
  - Pain in jaw [Unknown]

NARRATIVE: CASE EVENT DATE: 201902
